FAERS Safety Report 14753762 (Version 1)
Quarter: 2018Q2

REPORT INFORMATION
  Report Type: Spontaneous
  Country: US (occurrence: US)
  Receive Date: 20180412
  Receipt Date: 20180412
  Transmission Date: 20180711
  Serious: Yes (Other)
  Sender: FDA-Public Use
  Company Number: US-BAYER-2018-066100

PATIENT
  Age: 25 Year
  Sex: Female

DRUGS (2)
  1. MIRENA [Suspect]
     Active Substance: LEVONORGESTREL
  2. MIRENA [Suspect]
     Active Substance: LEVONORGESTREL
     Dosage: 20 MCG/24HR, CONT
     Route: 015
     Dates: start: 201401, end: 20180403

REACTIONS (5)
  - Genital haemorrhage [None]
  - Pain [None]
  - Pregnancy with contraceptive device [Not Recovered/Not Resolved]
  - Abdominal pain lower [None]
  - Drug ineffective [None]

NARRATIVE: CASE EVENT DATE: 201803
